FAERS Safety Report 9759563 (Version 1)
Quarter: 2013Q4

REPORT INFORMATION
  Report Type: Spontaneous
  Country: US (occurrence: US)
  Receive Date: 20131216
  Receipt Date: 20131216
  Transmission Date: 20140711
  Serious: No
  Sender: FDA-Public Use
  Company Number: US-GILEAD-2010-0028135

PATIENT
  Age: 80 Year
  Sex: Female
  Weight: 97.7 kg

DRUGS (10)
  1. LETAIRIS [Suspect]
     Indication: PULMONARY ARTERIAL HYPERTENSION
     Route: 048
     Dates: start: 20100224, end: 20100304
  2. CENTRUM [Concomitant]
  3. AMBIEN [Concomitant]
  4. SYNTHROID [Concomitant]
  5. ATENOLOL [Concomitant]
  6. POT CL [Concomitant]
  7. ISOSORB [Concomitant]
  8. ZANTAC [Concomitant]
  9. FISH OIL [Concomitant]
  10. ASPIRIN [Concomitant]

REACTIONS (3)
  - Chest pain [Recovered/Resolved]
  - Dyspnoea [Recovered/Resolved]
  - Lip swelling [Recovered/Resolved]
